FAERS Safety Report 6191810-1 (Version None)
Quarter: 2009Q2

REPORT INFORMATION
  Report Type: 
  Country: None (occurrence: None)
  Receive Date: 20090515
  Receipt Date: 20090504
  Transmission Date: 20091009
  Serious: Yes (Hospitalization)
  Sender: FDA-Public Use
  Company Number: US-JNJFOC-20090500843

PATIENT
  Age: 14 Year
  Sex: Male

DRUGS (1)
  1. PALIPERIDONE [Suspect]
     Indication: BIPOLAR DISORDER
     Route: 048

REACTIONS (4)
  - DYSTONIA [None]
  - OVERDOSE [None]
  - PSYCHOTIC DISORDER [None]
  - SALIVARY HYPERSECRETION [None]
